FAERS Safety Report 10110546 (Version 2)
Quarter: 2014Q2

REPORT INFORMATION
  Report Type: Report from Study
  Country: CH (occurrence: CH)
  Receive Date: 20140425
  Receipt Date: 20140425
  Transmission Date: 20141212
  Serious: Yes (Hospitalization)
  Sender: FDA-Public Use
  Company Number: CH-009507513-0808USA01107

PATIENT
  Age: 51 Year
  Sex: Male
  Weight: 90.1 kg

DRUGS (5)
  1. SIMVASTATIN [Suspect]
     Indication: ACUTE CORONARY SYNDROME
     Dosage: UNK
     Route: 048
     Dates: start: 20071008, end: 20080727
  2. PLAVIX [Concomitant]
     Dosage: 1 X 75 MG
     Route: 048
     Dates: start: 20071002
  3. ASPIRIN CARDIO [Concomitant]
     Dosage: 1 X 100 MG
     Route: 048
     Dates: start: 20071004
  4. BELOC-ZOK [Concomitant]
     Dosage: 1 X 50 MG
     Route: 048
     Dates: start: 20071004
  5. DAFALGAN [Concomitant]
     Dosage: UNK
     Dates: start: 20070803

REACTIONS (1)
  - Carcinoid tumour [Recovered/Resolved]
